FAERS Safety Report 9476383 (Version 2)
Quarter: 2013Q4

REPORT INFORMATION
  Report Type: Spontaneous
  Country: FR (occurrence: FR)
  Receive Date: 20130826
  Receipt Date: 20131015
  Transmission Date: 20140711
  Serious: Yes (Other)
  Sender: FDA-Public Use
  Company Number: FR-ROCHE-1266092

PATIENT
  Sex: Male
  Weight: 70 kg

DRUGS (6)
  1. ZELBORAF [Suspect]
     Indication: METASTATIC MALIGNANT MELANOMA
     Route: 048
     Dates: start: 20130731
  2. ZELBORAF [Suspect]
     Dosage: DOSE INTERUPPTED
     Route: 065
  3. ZELBORAF [Suspect]
     Dosage: READMINISTERED AS HALF THE DOSE (DOSE REDUCED)
     Route: 065
     Dates: end: 20130923
  4. LERCAPRESS (FRANCE) [Concomitant]
     Indication: HYPERTENSION
     Route: 048
  5. BISOPROLOL [Concomitant]
     Indication: HYPERTENSION
     Route: 048
  6. ATORVASTATIN [Concomitant]
     Indication: DYSLIPIDAEMIA
     Route: 048

REACTIONS (1)
  - Renal failure [Recovered/Resolved]
